FAERS Safety Report 18735204 (Version 1)
Quarter: 2021Q1

REPORT INFORMATION
  Report Type: Spontaneous
  Country: US (occurrence: US)
  Receive Date: 20210113
  Receipt Date: 20210113
  Transmission Date: 20210419
  Serious: No
  Sender: FDA-Public Use
  Company Number: US-009507513-2101USA001027

PATIENT
  Age: 4 Year

DRUGS (1)
  1. EMEND [Suspect]
     Active Substance: APREPITANT
     Dosage: CONCENTRATION: 70MG/100ML

REACTIONS (3)
  - No adverse event [Unknown]
  - Off label use [Unknown]
  - Product prescribing issue [Unknown]
